FAERS Safety Report 4589327-0 (Version None)
Quarter: 2005Q1

REPORT INFORMATION
  Report Type: 
  Country: None (occurrence: None)
  Receive Date: 20050216
  Receipt Date: 20050202
  Transmission Date: 20050727
  Serious: Yes (Other)
  Sender: FDA-Public Use
  Company Number: USA021123563

PATIENT
  Age: 69 Year
  Sex: Male
  Weight: 96 kg

DRUGS (3)
  1. HUMALOG [Suspect]
     Dosage: 36 U/2 DAY
     Dates: start: 19990101
  2. HUMALIN -HUMAN INSULIN (RDNA): 30% REGULAR, 70% NPH (H [Suspect]
     Indication: DIABETES MELLITUS
     Dosage: 52 U/2 DAY
     Dates: start: 20000101
  3. LANTUS [Concomitant]

REACTIONS (5)
  - BLOOD GLUCOSE INCREASED [None]
  - INJECTION SITE PAIN [None]
  - PHARMACEUTICAL PRODUCT COMPLAINT [None]
  - THROMBOSIS [None]
  - VISUAL ACUITY REDUCED [None]
